FAERS Safety Report 7268868-1 (Version None)
Quarter: 2011Q1

REPORT INFORMATION
  Report Type: 
  Country: None (occurrence: None)
  Receive Date: 20110201
  Receipt Date: 20110126
  Transmission Date: 20110831
  Serious: Yes (Other)
  Sender: FDA-Public Use
  Company Number: DE-PFIZER INC-2011018375

PATIENT
  Age: 44 Year
  Sex: Male

DRUGS (2)
  1. ZYVOX [Suspect]
     Route: 042
  2. ZYVOX [Suspect]
     Dosage: 600 MG, UNK
     Route: 048
     Dates: start: 20100201

REACTIONS (4)
  - MUSCLE ATROPHY [None]
  - STAPHYLOCOCCAL INFECTION [None]
  - AMPUTATION [None]
  - MUSCULAR WEAKNESS [None]
